FAERS Safety Report 13193278 (Version 1)
Quarter: 2017Q1

REPORT INFORMATION
  Report Type: Spontaneous
  Country: US (occurrence: US)
  Receive Date: 20170207
  Receipt Date: 20170207
  Transmission Date: 20170428
  Serious: Yes (Other)
  Sender: FDA-Public Use
  Company Number: US-SMITH AND NEPHEW, INC-2017SMT00070

PATIENT
  Age: 66 Year
  Sex: Male

DRUGS (1)
  1. REGRANEX [Suspect]
     Active Substance: BECAPLERMIN
     Indication: DIABETIC ULCER
     Dosage: UNK
     Dates: start: 201612

REACTIONS (2)
  - Toe amputation [Recovered/Resolved with Sequelae]
  - Drug ineffective [Recovered/Resolved]

NARRATIVE: CASE EVENT DATE: 201612
